FAERS Safety Report 6938495-1 (Version None)
Quarter: 2010Q3

REPORT INFORMATION
  Report Type: 
  Country: None (occurrence: None)
  Receive Date: 20100824
  Receipt Date: 20100810
  Transmission Date: 20110219
  Serious: Yes (Hospitalization, Other)
  Sender: FDA-Public Use
  Company Number: US-ELI_LILLY_AND_COMPANY-US201008003379

PATIENT
  Age: 67 Year
  Sex: Female

DRUGS (10)
  1. PROZAC [Suspect]
     Indication: DEPRESSION
     Dosage: 40 MG, DAILY (1/D)
  2. CYMBALTA [Suspect]
     Indication: DEPRESSION
     Dosage: 60 MG, DAILY (1/D)
  3. CYMBALTA [Suspect]
     Dosage: 60 MG, DAILY (1/D)
  4. SYNTHROID [Concomitant]
  5. ACIPHEX [Concomitant]
  6. VICODIN [Concomitant]
  7. EXCEDRIN (MIGRAINE) [Concomitant]
  8. PROBIOTIC FEMINA [Concomitant]
  9. ENZYMES [Concomitant]
  10. LOVAZA [Concomitant]

REACTIONS (11)
  - COLECTOMY [None]
  - FATIGUE [None]
  - INSOMNIA [None]
  - IRRITABLE BOWEL SYNDROME [None]
  - MALAISE [None]
  - NERVE INJURY [None]
  - PAIN [None]
  - RECTAL PROLAPSE [None]
  - SCAR [None]
  - SINUSITIS [None]
  - SYSTEMIC CANDIDA [None]
